FAERS Safety Report 12423840 (Version 1)
Quarter: 2016Q2

REPORT INFORMATION
  Report Type: Spontaneous
  Country: US (occurrence: None)
  Receive Date: 20160531
  Receipt Date: 20160531
  Transmission Date: 20160815
  Serious: Yes (Hospitalization)
  Sender: FDA-Public Use
  Company Number: None

PATIENT
  Age: 16 Year
  Sex: Male
  Weight: 131.7 kg

DRUGS (1)
  1. PREDNISONE. [Suspect]
     Active Substance: PREDNISONE

REACTIONS (4)
  - Gastrointestinal haemorrhage [None]
  - Shock [None]
  - Oesophageal candidiasis [None]
  - Adrenal insufficiency [None]

NARRATIVE: CASE EVENT DATE: 20150726
